FAERS Safety Report 4604042-2 (Version None)
Quarter: 2005Q1

REPORT INFORMATION
  Report Type: 
  Country: None (occurrence: None)
  Receive Date: 20050308
  Receipt Date: 20050308
  Transmission Date: 20050727
  Serious: No
  Sender: FDA-Public Use
  Company Number: None

PATIENT
  Age: 69 Year
  Sex: Female
  Weight: 95 kg

DRUGS (14)
  1. CUBICIN [Suspect]
     Indication: POSTOPERATIVE INFECTION
     Dosage: 565 MG Q24H INTRAVENOUS
     Route: 042
     Dates: start: 20050218, end: 20050305
  2. APAP TAB [Concomitant]
  3. ACETAMINOPHEN AND HYDROCODONE BITARTRATE [Concomitant]
  4. PROCTOFOAM [Concomitant]
  5. BETAMETHASONE/CLOTRIMAZOLE [Concomitant]
  6. IPRATROPIUM BROMIDE [Concomitant]
  7. LACTOBACILLUS [Concomitant]
  8. LISINOPRIL [Concomitant]
  9. MUPIRICIN [Concomitant]
  10. PANTOPRAZOLE [Concomitant]
  11. VANCOMYCIN [Concomitant]
  12. ATENOLOL [Concomitant]
  13. ALBUTEROL [Concomitant]
  14. HEPARIN [Concomitant]

REACTIONS (1)
  - BLOOD CREATINE PHOSPHOKINASE INCREASED [None]
